FAERS Safety Report 17005155 (Version 2)
Quarter: 2019Q4

REPORT INFORMATION
  Report Type: Spontaneous
  Country: US (occurrence: US)
  Receive Date: 20191107
  Receipt Date: 20191126
  Transmission Date: 20200122
  Serious: No
  Sender: FDA-Public Use
  Company Number: US-BAUSCH-BL-2019-060260

PATIENT
  Age: 58 Year
  Sex: Female

DRUGS (1)
  1. LUMIFY [Suspect]
     Active Substance: BRIMONIDINE TARTRATE
     Indication: PRODUCT USED FOR UNKNOWN INDICATION
     Dosage: PATIENT USED IT IN 3 SEPARATE TIMES. ONE DROP IN EACH EYE
     Route: 065

REACTIONS (4)
  - Headache [Unknown]
  - Asthenopia [Unknown]
  - Photophobia [Unknown]
  - Dizziness [Unknown]
